FAERS Safety Report 8711576 (Version 3)
Quarter: 2012Q4

REPORT INFORMATION
  Report Type: 
  Country: US (occurrence: US)
  Receive Date: 20120807
  Receipt Date: 20121019
  Transmission Date: 20130627
  Serious: Yes (Other)
  Sender: FDA-Public Use
  Company Number: US-ROCHE-1065015

PATIENT
  Age: 42 Year
  Sex: Female

DRUGS (1)
  1. ACCUTANE [Suspect]
     Indication: ACNE CYSTIC
     Route: 048
     Dates: start: 19990426, end: 19991230

REACTIONS (12)
  - Colitis ulcerative [Unknown]
  - Inflammatory bowel disease [Unknown]
  - Pterygium [Unknown]
  - Lip exfoliation [Unknown]
  - Dry skin [Unknown]
  - Ocular hyperaemia [Unknown]
  - Eye irritation [Unknown]
  - Urticaria [Unknown]
  - Rash macular [Unknown]
  - Platelet count increased [Unknown]
  - Dry eye [Unknown]
  - Blepharitis [Unknown]
